FAERS Safety Report 7245615-0 (Version None)
Quarter: 2011Q1

REPORT INFORMATION
  Report Type: 
  Country: None (occurrence: None)
  Receive Date: 20110126
  Receipt Date: 20110113
  Transmission Date: 20110831
  Serious: Yes (Other)
  Sender: FDA-Public Use
  Company Number: PHHY2011BE03757

PATIENT
  Age: 40 Year
  Sex: Male

DRUGS (2)
  1. ASPIRIN [Concomitant]
     Dosage: UNK
  2. BISOPROLOL [Suspect]
     Indication: SUPRAVENTRICULAR TACHYCARDIA
     Dosage: 5 MG, UNK

REACTIONS (15)
  - PHARYNGITIS [None]
  - ABSCESS LIMB [None]
  - OCULOMUCOCUTANEOUS SYNDROME [None]
  - EYE DISORDER [None]
  - OROPHARYNGEAL BLISTERING [None]
  - NAIL DISCOLOURATION [None]
  - LICHENOID KERATOSIS [None]
  - MOUTH ULCERATION [None]
  - CONJUNCTIVITIS [None]
  - GENITAL ULCERATION [None]
  - SKIN ULCER [None]
  - APHTHOUS STOMATITIS [None]
  - PAIN [None]
  - STAPHYLOCOCCUS TEST POSITIVE [None]
  - ERYTHEMA MULTIFORME [None]
